FAERS Safety Report 9476660 (Version 2)
Quarter: 2013Q3

REPORT INFORMATION
  Report Type: Spontaneous
  Country: US (occurrence: US)
  Receive Date: 20130826
  Receipt Date: 20130826
  Transmission Date: 20140515
  Serious: No
  Sender: FDA-Public Use
  Company Number: US-BRISTOL-MYERS SQUIBB COMPANY-18792903

PATIENT
  Age: 31 Year
  Sex: Female
  Weight: 50.79 kg

DRUGS (7)
  1. KENALOG-40 INJ [Suspect]
     Indication: UPPER RESPIRATORY TRACT INFECTION
     Dosage: KENALOG 40 MG
     Route: 030
     Dates: start: 20121217
  2. LEVOFLOXACIN [Concomitant]
     Indication: UPPER RESPIRATORY TRACT INFECTION
  3. PRENATAL VITAMIN [Concomitant]
  4. TERAZOL [Concomitant]
     Dosage: 0.8% CREAM, 1 VAGINALLY QHS
     Dates: start: 20120309
  5. HYDROCODONE + ACETAMINOPHEN [Concomitant]
     Indication: PAIN
     Dosage: 1DF-5-325MG TABS, 1-2 Q4H PRN
     Route: 048
     Dates: start: 20120822
  6. MACROBID [Concomitant]
     Route: 048
     Dates: start: 20121203
  7. DROSPIRENONE + ETHINYLESTRADIOL [Concomitant]
     Dosage: 3-0.03MG
     Route: 048

REACTIONS (2)
  - Injection site pain [Unknown]
  - Injection site atrophy [Unknown]
